FAERS Safety Report 8526724 (Version 2)
Quarter: 2013Q1

REPORT INFORMATION
  Report Type: Report from Study
  Country: FR (occurrence: FR)
  Receive Date: 20120423
  Receipt Date: 20130131
  Transmission Date: 20140127
  Serious: Yes (Hospitalization, Disabling)
  Sender: FDA-Public Use
  Company Number: FR-ROCHE-1044167

PATIENT
  Age: 61 Year
  Sex: Female
  Weight: 79 kg

DRUGS (7)
  1. TOCILIZUMAB [Suspect]
     Dosage: 640  MONTHLY DOSE
     Route: 065
     Dates: start: 20111214
  2. TOCILIZUMAB [Suspect]
     Dosage: 640  MONTHLY DOSE
     Route: 065
     Dates: start: 20120111
  3. TOCILIZUMAB [Suspect]
     Dosage: 640  MONTHLY DOSE
     Route: 065
     Dates: start: 20120208, end: 20120208
  4. METHOTREXATE [Concomitant]
     Route: 065
  5. CORTICOSTEROID NOS [Concomitant]
     Route: 065
  6. TOCILIZUMAB [Suspect]
     Indication: RHEUMATOID ARTHRITIS
     Dosage: 640  MONTHLY DOSE
     Route: 065
     Dates: start: 20111011
  7. TOCILIZUMAB [Suspect]
     Dosage: 640  MONTHLY DOSE
     Route: 065
     Dates: start: 20111110

REACTIONS (1)
  - Ischaemic stroke [Recovered/Resolved with Sequelae]
